FAERS Safety Report 10748899 (Version 1)
Quarter: 2015Q1

REPORT INFORMATION
  Report Type: Spontaneous
  Country: None (occurrence: None)
  Receive Date: 20150128
  Receipt Date: 20150128
  Transmission Date: 20150721
  Serious: No
  Sender: FDA-Public Use
  Company Number: None

PATIENT
  Age: 66 Year
  Sex: Female

DRUGS (1)
  1. CELECOXIB. [Suspect]
     Active Substance: CELECOXIB
     Dosage: 1 CAPSULE, BID, ORAL
     Route: 048

REACTIONS (3)
  - Vision blurred [None]
  - Product substitution issue [None]
  - Diplopia [None]

NARRATIVE: CASE EVENT DATE: 20150116
